FAERS Safety Report 26098572 (Version 1)
Quarter: 2025Q4

REPORT INFORMATION
  Report Type: Report from Study
  Country: US (occurrence: US)
  Receive Date: 20251127
  Receipt Date: 20251127
  Transmission Date: 20260117
  Serious: Yes (Other)
  Sender: ABBVIE
  Company Number: US-ABBVIE-5716185

PATIENT
  Age: 67 Year
  Sex: Male

DRUGS (1)
  1. SKYRIZI [Suspect]
     Active Substance: RISANKIZUMAB-RZAA
     Indication: Psoriasis
     Route: 058
     Dates: start: 20231217

REACTIONS (19)
  - Haemoglobin decreased [Unknown]
  - Post-acute COVID-19 syndrome [Unknown]
  - Sinusitis [Not Recovered/Not Resolved]
  - Pneumonia [Recovered/Resolved]
  - Productive cough [Unknown]
  - Headache [Unknown]
  - Pain [Unknown]
  - Decreased appetite [Unknown]
  - Nausea [Unknown]
  - Asthenia [Not Recovered/Not Resolved]
  - Rhinorrhoea [Unknown]
  - Fatigue [Not Recovered/Not Resolved]
  - Respiratory disorder [Recovering/Resolving]
  - Diaphragmatic disorder [Recovering/Resolving]
  - Asthma [Unknown]
  - Constipation [Recovered/Resolved]
  - Psoriasis [Unknown]
  - Cholecystitis [Unknown]
  - Pyrexia [Unknown]

NARRATIVE: CASE EVENT DATE: 20231201
